FAERS Safety Report 23302071 (Version 1)
Quarter: 2023Q4

REPORT INFORMATION
  Report Type: Spontaneous
  Country: US (occurrence: US)
  Receive Date: 20231215
  Receipt Date: 20231215
  Transmission Date: 20240110
  Serious: No
  Sender: FDA-Public Use
  Company Number: US-MYLANLABS-2023M1129178

PATIENT
  Age: 66 Year
  Sex: Female

DRUGS (2)
  1. ESTRADIOL TRANSDERMAL SYSTEM [Suspect]
     Active Substance: ESTRADIOL
     Indication: Hormone replacement therapy
     Dosage: 0.05 MILLIGRAM, QD  (TWICE-WEEKLY)
     Route: 062
     Dates: start: 20231111
  2. PROGESTERONE [Concomitant]
     Active Substance: PROGESTERONE
     Indication: Hormone replacement therapy
     Dosage: 200 MILLIGRAM, QD (AT NIGHT)
     Route: 065

REACTIONS (4)
  - Application site pruritus [Unknown]
  - Off label use [Unknown]
  - Product adhesion issue [Unknown]
  - Product size issue [Unknown]

NARRATIVE: CASE EVENT DATE: 20231122
